FAERS Safety Report 23290314 (Version 5)
Quarter: 2025Q2

REPORT INFORMATION
  Report Type: Spontaneous
  Country: US (occurrence: US)
  Receive Date: 20231213
  Receipt Date: 20250514
  Transmission Date: 20250716
  Serious: Yes (Disabling, Other)
  Sender: AMGEN
  Company Number: US-HORIZON THERAPEUTICS-HZN-2023-010441

PATIENT
  Age: 67 Year
  Sex: Female

DRUGS (20)
  1. TEPEZZA [Suspect]
     Active Substance: TEPROTUMUMAB-TRBW
     Indication: Toxic goitre
     Route: 042
     Dates: start: 20210714
  2. TEPEZZA [Suspect]
     Active Substance: TEPROTUMUMAB-TRBW
     Indication: Endocrine ophthalmopathy
     Dosage: 1460 MILLIGRAM, Q3WK (SECOND INFUSION)
     Route: 042
     Dates: start: 20210811
  3. TEPEZZA [Suspect]
     Active Substance: TEPROTUMUMAB-TRBW
     Dosage: 1320 MILLIGRAM, Q3WK (THIRD INFUSION)
     Route: 042
     Dates: start: 20210929
  4. TEPEZZA [Suspect]
     Active Substance: TEPROTUMUMAB-TRBW
     Dosage: 1320 MILLIGRAM, Q3WK (FOURTH INFUSION)
     Route: 042
     Dates: start: 20231020
  5. TEPEZZA [Suspect]
     Active Substance: TEPROTUMUMAB-TRBW
     Dosage: 1280 MILLIGRAM, Q3WK (LAST INFUSION)
     Route: 042
     Dates: start: 20211201, end: 20211201
  6. XIIDRA [Concomitant]
     Active Substance: LIFITEGRAST
     Dosage: UNK, BID ( 1 GTT OU BID)
     Route: 047
     Dates: start: 20210916
  7. REFRESH OPTIVE MEGA-3 [Concomitant]
     Active Substance: CARBOXYMETHYLCELLULOSE SODIUM\GLYCERIN\POLYSORBATE 80
     Route: 047
  8. RESTASIS [Concomitant]
     Active Substance: CYCLOSPORINE
     Dosage: UNK, BID (1 GTT OU BID QS 90)
     Route: 047
  9. SYSTANE ULTRA [Concomitant]
     Active Substance: POLYETHYLENE GLYCOL 400\PROPYLENE GLYCOL
     Route: 047
  10. CLARITIN [Concomitant]
     Active Substance: LORATADINE
     Route: 048
  11. FISH OIL [Concomitant]
     Active Substance: FISH OIL
     Route: 048
  12. METOPROLOL TARTRATE [Concomitant]
     Active Substance: METOPROLOL TARTRATE
     Dosage: 50 MILLIGRAM, QD
     Route: 048
  13. VITAMINS [Concomitant]
     Active Substance: VITAMINS
     Dosage: UNK, QD
     Route: 048
  14. PRILOSEC [Concomitant]
     Active Substance: OMEPRAZOLE MAGNESIUM
     Route: 048
  15. SYNTHROID [Concomitant]
     Active Substance: LEVOTHYROXINE SODIUM
     Dosage: 125 MICROGRAM, QD
     Route: 048
  16. TRIAMTERENE [Concomitant]
     Active Substance: TRIAMTERENE
     Dosage: 50 MILLIGRAM, QD
     Route: 048
  17. VALTREX [Concomitant]
     Active Substance: VALACYCLOVIR HYDROCHLORIDE
     Dosage: 500 MILLIGRAM, BID
     Route: 048
  18. ZITHROMAX [Concomitant]
     Active Substance: AZITHROMYCIN DIHYDRATE
     Route: 065
  19. OMEPRAZOLE [Concomitant]
     Active Substance: OMEPRAZOLE
     Route: 065
  20. TRIAMTERENE AND HYDROCHLOROTHIAZIDE [Concomitant]
     Active Substance: HYDROCHLOROTHIAZIDE\TRIAMTERENE
     Dosage: 62.5 MILLIGRAM, QD ( 37.5-25 MG)
     Route: 048

REACTIONS (37)
  - Physical disability [Not Recovered/Not Resolved]
  - Disability [Not Recovered/Not Resolved]
  - Arrhythmia [Unknown]
  - Diverticulitis [Unknown]
  - Deafness neurosensory [Not Recovered/Not Resolved]
  - Pain [Not Recovered/Not Resolved]
  - Injury [Not Recovered/Not Resolved]
  - Anxiety [Not Recovered/Not Resolved]
  - Concomitant disease aggravated [Not Recovered/Not Resolved]
  - Discomfort [Unknown]
  - Impaired quality of life [Not Recovered/Not Resolved]
  - Economic problem [Not Recovered/Not Resolved]
  - Product quality issue [Unknown]
  - Stomatitis [Recovered/Resolved]
  - Ageusia [Unknown]
  - Dry mouth [Unknown]
  - Epistaxis [Unknown]
  - Muscular weakness [Unknown]
  - Emotional distress [Not Recovered/Not Resolved]
  - Abdominal pain [Unknown]
  - Inappropriate schedule of product administration [Unknown]
  - Menopause [Unknown]
  - Thyroid stimulating immunoglobulin increased [Unknown]
  - Alopecia [Unknown]
  - Tendonitis [Unknown]
  - Diplopia [Unknown]
  - Strabismus [Unknown]
  - Ear discomfort [Unknown]
  - Fatigue [Unknown]
  - Weight decreased [Unknown]
  - Arthralgia [Unknown]
  - Tinnitus [Not Recovered/Not Resolved]
  - Diarrhoea [Unknown]
  - Headache [Unknown]
  - Muscle spasms [Unknown]
  - Cerumen impaction [Unknown]
  - Hypoacusis [Unknown]

NARRATIVE: CASE EVENT DATE: 20210101
